FAERS Safety Report 16070231 (Version 2)
Quarter: 2019Q1

REPORT INFORMATION
  Report Type: Spontaneous
  Country: PT (occurrence: PT)
  Receive Date: 20190314
  Receipt Date: 20190316
  Transmission Date: 20190418
  Serious: Yes (Other)
  Sender: FDA-Public Use
  Company Number: PT-ROCHE-2279008

PATIENT
  Age: 25 Year
  Sex: Female

DRUGS (7)
  1. TRASTUZUMAB. [Suspect]
     Active Substance: TRASTUZUMAB
     Indication: HER-2 POSITIVE BREAST CANCER
     Route: 065
     Dates: start: 201211, end: 201401
  2. PACLITAXEL. [Suspect]
     Active Substance: PACLITAXEL
     Indication: HER-2 POSITIVE BREAST CANCER
     Route: 065
     Dates: start: 201211, end: 201301
  3. TRASTUZUMAB. [Suspect]
     Active Substance: TRASTUZUMAB
     Route: 065
     Dates: start: 201504
  4. PERTUZUMAB. [Suspect]
     Active Substance: PERTUZUMAB
     Indication: HER-2 POSITIVE BREAST CANCER
     Route: 065
     Dates: start: 201504
  5. GOSERELIN [Suspect]
     Active Substance: GOSERELIN
     Indication: HER-2 POSITIVE BREAST CANCER
     Route: 065
     Dates: start: 201504
  6. DOCETAXEL. [Suspect]
     Active Substance: DOCETAXEL
     Indication: HER-2 POSITIVE BREAST CANCER
     Route: 065
     Dates: start: 201504, end: 201507
  7. ZOLEDRONIC ACID. [Suspect]
     Active Substance: ZOLEDRONIC ACID
     Indication: HER-2 POSITIVE BREAST CANCER
     Route: 065
     Dates: start: 201504

REACTIONS (18)
  - Right ventricular dysfunction [Unknown]
  - Metastases to nervous system [Recovered/Resolved]
  - Metastases to liver [Recovered/Resolved]
  - Alopecia [Unknown]
  - Osteolysis [Unknown]
  - Bone lesion [Unknown]
  - Pulmonary embolism [Unknown]
  - Metastases to bone [Recovered/Resolved]
  - Metastases to lung [Recovered/Resolved]
  - Metastases to central nervous system [Unknown]
  - Dyspnoea [Unknown]
  - Fatigue [Unknown]
  - Bone lesion [Unknown]
  - Central nervous system lesion [Unknown]
  - Metastases to central nervous system [Unknown]
  - Diarrhoea [Unknown]
  - Decreased appetite [Unknown]
  - Oedema peripheral [Unknown]

NARRATIVE: CASE EVENT DATE: 201503
